FAERS Safety Report 21161865 (Version 3)
Quarter: 2022Q4

REPORT INFORMATION
  Report Type: Report from Study
  Country: US (occurrence: US)
  Receive Date: 20220802
  Receipt Date: 20221024
  Transmission Date: 20230113
  Serious: No
  Sender: FDA-Public Use
  Company Number: US-NOVARTISTESTPH-NVSC2022US173933

PATIENT
  Sex: Female

DRUGS (1)
  1. KESIMPTA [Suspect]
     Active Substance: OFATUMUMAB
     Indication: Product used for unknown indication
     Dosage: UNK (FIRST LOADING DOSE, INTO HER THIGH)
     Route: 058
     Dates: start: 20220723

REACTIONS (3)
  - Pain [Unknown]
  - Chills [Unknown]
  - Nasopharyngitis [Unknown]
